FAERS Safety Report 25061930 (Version 1)
Quarter: 2025Q1

REPORT INFORMATION
  Report Type: Spontaneous
  Country: US (occurrence: US)
  Receive Date: 20250311
  Receipt Date: 20250311
  Transmission Date: 20250408
  Serious: No
  Sender: ALEXION PHARMACEUTICALS
  Company Number: US-AstraZeneca-CH-00822949AP

PATIENT

DRUGS (1)
  1. FASENRA [Suspect]
     Active Substance: BENRALIZUMAB
     Route: 065

REACTIONS (6)
  - Product use issue [Unknown]
  - Inappropriate schedule of product administration [Unknown]
  - Injection site pain [Unknown]
  - Injection site rash [Unknown]
  - Incorrect dose administered by device [Unknown]
  - Cough [Unknown]
